FAERS Safety Report 19873509 (Version 4)
Quarter: 2022Q3

REPORT INFORMATION
  Report Type: Spontaneous
  Country: JP (occurrence: JP)
  Receive Date: 20210923
  Receipt Date: 20220921
  Transmission Date: 20221027
  Serious: Yes (Death, Life-Threatening, Hospitalization)
  Sender: FDA-Public Use
  Company Number: JP-ELI_LILLY_AND_COMPANY-JP202109008345

PATIENT
  Age: 67 Year
  Sex: Female

DRUGS (3)
  1. ADCIRCA [Suspect]
     Active Substance: TADALAFIL
     Indication: Pulmonary arterial hypertension
     Dosage: 20 MG, DAILY
     Route: 048
     Dates: start: 20200223, end: 20200408
  2. ADCIRCA [Suspect]
     Active Substance: TADALAFIL
     Dosage: 20 MG, DAILY
     Route: 048
  3. PREDONINE [Concomitant]
     Active Substance: PREDNISOLONE
     Indication: Mixed connective tissue disease
     Dosage: UNK, UNKNOWN
     Route: 065

REACTIONS (10)
  - Cardiac failure congestive [Fatal]
  - Circulatory collapse [Fatal]
  - Respiratory failure [Fatal]
  - Pulmonary oedema [Fatal]
  - Peritonitis [Not Recovered/Not Resolved]
  - Sepsis [Not Recovered/Not Resolved]
  - Ascites [Recovering/Resolving]
  - Disseminated intravascular coagulation [Unknown]
  - Substance-induced psychotic disorder [Unknown]
  - Ventilation perfusion mismatch [Unknown]
